FAERS Safety Report 7565552-1 (Version None)
Quarter: 2011Q2

REPORT INFORMATION
  Report Type: 
  Country: None (occurrence: None)
  Receive Date: 20110615
  Receipt Date: 20110606
  Transmission Date: 20111010
  Serious: Yes (Disabling, Other)
  Sender: FDA-Public Use
  Company Number: LEO-2011-00132

PATIENT
  Age: 43 Year
  Sex: Male
  Weight: 71 kg

DRUGS (3)
  1. TACLONEX [Suspect]
     Indication: PSORIASIS
     Dosage: TOPICAL
     Route: 061
  2. DIPROSONE [Concomitant]
  3. SORIATANE [Concomitant]

REACTIONS (3)
  - JOINT EFFUSION [None]
  - OSTEONECROSIS [None]
  - ARTHRALGIA [None]
